FAERS Safety Report 6516864-1 (Version None)
Quarter: 2009Q4

REPORT INFORMATION
  Report Type: 
  Country: None (occurrence: None)
  Receive Date: 20091223
  Receipt Date: 20091215
  Transmission Date: 20100525
  Serious: Yes (Hospitalization)
  Sender: FDA-Public Use
  Company Number: US-ABBOTT-09P-163-0614359-00

PATIENT
  Sex: Male
  Weight: 97.156 kg

DRUGS (15)
  1. HUMIRA [Suspect]
     Indication: RHEUMATOID ARTHRITIS
     Dates: start: 20060101
  2. LYRICA [Suspect]
     Indication: PAIN
     Dates: start: 20070101
  3. FOLIC ACID [Concomitant]
     Indication: DRUG USE FOR UNKNOWN INDICATION
  4. CYCLOBENZAPRINE [Concomitant]
     Indication: DRUG USE FOR UNKNOWN INDICATION
  5. TOLBUTAMIDE [Concomitant]
     Indication: DRUG USE FOR UNKNOWN INDICATION
  6. METFORMIN HCL [Concomitant]
     Indication: DIABETES MELLITUS
  7. METOPROLOL TARTRATE [Concomitant]
     Indication: DRUG USE FOR UNKNOWN INDICATION
  8. ALPRAZOLAM [Concomitant]
     Indication: INSOMNIA
  9. NEXIUM [Concomitant]
     Indication: PROPHYLAXIS
  10. NEXIUM [Concomitant]
     Indication: ABDOMINAL DISCOMFORT
  11. SIMVASTATIN [Concomitant]
     Indication: DRUG USE FOR UNKNOWN INDICATION
  12. UNKNOWN MEDICATION [Concomitant]
     Indication: PROSTATIC DISORDER
  13. HYDROCODONE [Concomitant]
     Indication: BACK PAIN
  14. METHOTREXATE [Concomitant]
     Indication: RHEUMATOID ARTHRITIS
     Dosage: 5 PILLS
  15. METHOTREXATE [Concomitant]
     Dosage: 8 PILLS

REACTIONS (3)
  - DEEP VEIN THROMBOSIS [None]
  - OEDEMA PERIPHERAL [None]
  - THROMBOPHLEBITIS [None]
